FAERS Safety Report 5936085-0 (Version None)
Quarter: 2008Q4

REPORT INFORMATION
  Report Type: 
  Country: None (occurrence: None)
  Receive Date: 20081030
  Receipt Date: 20081021
  Transmission Date: 20090506
  Serious: Yes (Other)
  Sender: FDA-Public Use
  Company Number: BR-PFIZER INC-2008038012

PATIENT
  Sex: Female
  Weight: 60 kg

DRUGS (4)
  1. FRONTAL XR [Suspect]
     Indication: ANXIETY
     Route: 048
     Dates: start: 20080425
  2. CITALOPRAM HYDROBROMIDE [Concomitant]
     Route: 048
     Dates: start: 20080425
  3. CENTRUM [Concomitant]
  4. BORAGO OFFICINALIS [Concomitant]
     Dates: start: 20080101

REACTIONS (25)
  - ABDOMINAL DISCOMFORT [None]
  - ALOPECIA [None]
  - ANXIETY [None]
  - ARTHRALGIA [None]
  - BLOOD PRESSURE FLUCTUATION [None]
  - BLOOD PRESSURE INCREASED [None]
  - DIZZINESS [None]
  - DRUG DOSE OMISSION [None]
  - DRUG INEFFECTIVE [None]
  - DRY MOUTH [None]
  - FEELING ABNORMAL [None]
  - FEELING COLD [None]
  - FEELING HOT [None]
  - HEADACHE [None]
  - MALAISE [None]
  - MENSTRUATION IRREGULAR [None]
  - MOOD ALTERED [None]
  - NASAL DISCOMFORT [None]
  - NAUSEA [None]
  - OBSESSIVE THOUGHTS [None]
  - PALPITATIONS [None]
  - TACHYCARDIA [None]
  - TENDON PAIN [None]
  - TENSION [None]
  - TREMOR [None]
